FAERS Safety Report 7394400-8 (Version None)
Quarter: 2011Q2

REPORT INFORMATION
  Report Type: 
  Country: None (occurrence: None)
  Receive Date: 20110405
  Receipt Date: 20110321
  Transmission Date: 20111010
  Serious: Yes (Hospitalization)
  Sender: FDA-Public Use
  Company Number: PHHY2011SE22720

PATIENT
  Sex: Female

DRUGS (2)
  1. ESIDRIX [Suspect]
     Indication: MENIERE'S DISEASE
     Dosage: 25 MG, BID
  2. LEVOTHYROXINE SODIUM [Concomitant]
     Dosage: 150 UG, UNK

REACTIONS (1)
  - ATRIAL FIBRILLATION [None]
